FAERS Safety Report 16720170 (Version 2)
Quarter: 2019Q3

REPORT INFORMATION
  Report Type: Spontaneous
  Country: US (occurrence: US)
  Receive Date: 20190820
  Receipt Date: 20190911
  Transmission Date: 20191005
  Serious: No
  Sender: FDA-Public Use
  Company Number: US-MERZ NORTH AMERICA, INC.-19MRZ-00321

PATIENT
  Sex: Female

DRUGS (1)
  1. ASCLERA [Suspect]
     Active Substance: POLIDOCANOL
     Indication: SPIDER VEIN
     Dosage: 10ML
     Route: 042
     Dates: start: 20190729, end: 20190729

REACTIONS (3)
  - Blister rupture [Unknown]
  - Blood blister [Unknown]
  - Ulcer [Not Recovered/Not Resolved]
